FAERS Safety Report 5967004-9 (Version None)
Quarter: 2008Q4

REPORT INFORMATION
  Report Type: 
  Country: None (occurrence: None)
  Receive Date: 20081125
  Receipt Date: 20081114
  Transmission Date: 20090506
  Serious: Yes (Other)
  Sender: FDA-Public Use
  Company Number: US-ELI_LILLY_AND_COMPANY-US200811003366

PATIENT
  Sex: Female

DRUGS (8)
  1. FORTEO [Suspect]
     Indication: OSTEOPOROSIS
     Dosage: 20 UG, DAILY (1/D)
     Dates: start: 20080329
  2. CALCIUM [Concomitant]
  3. DILTIAZEM HYDROCHLORIDE [Concomitant]
  4. INDOMETHACIN [Concomitant]
  5. AGGRENOX [Concomitant]
  6. VITAMIN D [Concomitant]
  7. CLONIDINE [Concomitant]
  8. SIMVASTATIN [Concomitant]

REACTIONS (1)
  - CEREBROVASCULAR ACCIDENT [None]
